FAERS Safety Report 4764338-0 (Version None)
Quarter: 2005Q3

REPORT INFORMATION
  Report Type: 
  Country: None (occurrence: None)
  Receive Date: 20050907
  Receipt Date: 20050826
  Transmission Date: 20060218
  Serious: Yes (Disabling)
  Sender: FDA-Public Use
  Company Number: 200512731GDS

PATIENT
  Age: 90 Year
  Sex: Male

DRUGS (3)
  1. AVELOX [Suspect]
  2. NIMESULIDE [Suspect]
  3. BETAMETHASONE SODIUM PHOSPHATE [Suspect]

REACTIONS (2)
  - ABASIA [None]
  - ASTHENIA [None]
